FAERS Safety Report 7321141-5 (Version None)
Quarter: 2011Q1

REPORT INFORMATION
  Report Type: 
  Country: None (occurrence: None)
  Receive Date: 20110228
  Receipt Date: 20110218
  Transmission Date: 20110831
  Serious: Yes (Other)
  Sender: FDA-Public Use
  Company Number: US-MYLANLABS-2011S1003422

PATIENT
  Sex: Female

DRUGS (1)
  1. LEVOTHYROXINE SODIUM [Suspect]
     Indication: THYROID DISORDER
     Dates: start: 20101201

REACTIONS (7)
  - GENERALISED OEDEMA [None]
  - LOSS OF CONSCIOUSNESS [None]
  - HEAD INJURY [None]
  - DYSPNOEA [None]
  - PALPITATIONS [None]
  - DIZZINESS [None]
  - REACTION TO DRUG EXCIPIENTS [None]
